FAERS Safety Report 8221251-4 (Version None)
Quarter: 2012Q1

REPORT INFORMATION
  Report Type: 
  Country: None (occurrence: None)
  Receive Date: 20120320
  Receipt Date: 20120313
  Transmission Date: 20120608
  Serious: Yes (Other)
  Sender: FDA-Public Use
  Company Number: PHHY2012NL021632

PATIENT
  Sex: Female
  Weight: 57.5 kg

DRUGS (1)
  1. SANDOSTATIN LAR [Suspect]
     Indication: PANCREATIC NEUROENDOCRINE TUMOUR
     Dosage: 30 MG, QW4
     Dates: start: 20101015

REACTIONS (3)
  - MUSCULOSKELETAL DISCOMFORT [None]
  - THORACIC VERTEBRAL FRACTURE [None]
  - OSTEOPOROSIS [None]
